FAERS Safety Report 5798609-6 (Version None)
Quarter: 2008Q3

REPORT INFORMATION
  Report Type: 
  Country: None (occurrence: None)
  Receive Date: 20080702
  Receipt Date: 20080625
  Transmission Date: 20090109
  Serious: Yes (Other)
  Sender: FDA-Public Use
  Company Number: KP-TYCO HEALTHCARE/MALLINCKRODT-T200801037

PATIENT

DRUGS (1)
  1. OPTIRAY 300 [Suspect]
     Indication: SCAN BRAIN
     Dosage: 15 ML, SINGLE
     Route: 042
     Dates: start: 20080613, end: 20080613

REACTIONS (5)
  - CONDITION AGGRAVATED [None]
  - CONVULSION [None]
  - HYPONATRAEMIA [None]
  - PYREXIA [None]
  - VOMITING [None]
